FAERS Safety Report 6594788-1 (Version None)
Quarter: 2010Q1

REPORT INFORMATION
  Report Type: 
  Country: None (occurrence: None)
  Receive Date: 20100222
  Receipt Date: 20100208
  Transmission Date: 20100710
  Serious: Yes (Other)
  Sender: FDA-Public Use
  Company Number: AU-JNJFOC-20100209031

PATIENT
  Age: 60 Year
  Sex: Male

DRUGS (6)
  1. TRAMADOL HCL [Suspect]
     Indication: DRUG USE FOR UNKNOWN INDICATION
     Route: 048
  2. FLUOXETINE HYDROCHLORIDE [Interacting]
     Indication: DRUG USE FOR UNKNOWN INDICATION
     Route: 048
  3. HEPARIN CALCIUM [Concomitant]
  4. OXYCONTIN [Concomitant]
  5. SIMVASTATIN [Concomitant]
  6. PARACETAMOL [Concomitant]

REACTIONS (9)
  - AGITATION [None]
  - ATAXIA [None]
  - BLOOD CREATINE PHOSPHOKINASE INCREASED [None]
  - DRUG INTERACTION [None]
  - DRY MOUTH [None]
  - MUSCULAR WEAKNESS [None]
  - SEROTONIN SYNDROME [None]
  - TREMOR [None]
  - WEIGHT BEARING DIFFICULTY [None]
